FAERS Safety Report 13906916 (Version 1)
Quarter: 2017Q3

REPORT INFORMATION
  Report Type: Spontaneous
  Country: KR (occurrence: KR)
  Receive Date: 20170825
  Receipt Date: 20170825
  Transmission Date: 20171127
  Serious: Yes (Other)
  Sender: FDA-Public Use
  Company Number: KR-UNICHEM LABORATORIES LIMITED-UCM201708-000218

PATIENT
  Age: 50 Year
  Sex: Female

DRUGS (13)
  1. QUETIAPINE. [Suspect]
     Active Substance: QUETIAPINE
  2. OLANZAPINE. [Concomitant]
     Active Substance: OLANZAPINE
  3. DIVALPROEX SODIUM. [Suspect]
     Active Substance: DIVALPROEX SODIUM
  4. LITHIUM. [Concomitant]
     Active Substance: LITHIUM
  5. DEXAMETHASONE. [Concomitant]
     Active Substance: DEXAMETHASONE
     Dosage: PER DAY
  6. HALOPERIDOL. [Concomitant]
     Active Substance: HALOPERIDOL
  7. AMISULPRIDE [Concomitant]
     Active Substance: AMISULPRIDE
  8. SULPIRIDE [Concomitant]
     Active Substance: SULPIRIDE
     Dosage: FOR 2 WEEKS
  9. AMOXICILLIN. [Concomitant]
     Active Substance: AMOXICILLIN
     Indication: TONSILLITIS
  10. LITHIUM. [Concomitant]
     Active Substance: LITHIUM
  11. QUETIAPINE. [Suspect]
     Active Substance: QUETIAPINE
  12. QUETIAPINE. [Suspect]
     Active Substance: QUETIAPINE
  13. RISPERIDONE. [Concomitant]
     Active Substance: RISPERIDONE
     Dosage: FOR 2 WEEKS

REACTIONS (7)
  - Drug reaction with eosinophilia and systemic symptoms [Recovered/Resolved]
  - Rash [Recovered/Resolved]
  - Hepatitis [Recovered/Resolved]
  - Sensitisation [Unknown]
  - Pyrexia [Recovered/Resolved]
  - Hepatic function abnormal [Recovered/Resolved]
  - Drug hypersensitivity [Recovered/Resolved]
